FAERS Safety Report 25305407 (Version 5)
Quarter: 2025Q3

REPORT INFORMATION
  Report Type: Spontaneous
  Country: US (occurrence: US)
  Receive Date: 20250513
  Receipt Date: 20250708
  Transmission Date: 20251021
  Serious: Yes (Other)
  Sender: PFIZER
  Company Number: US-PFIZER INC-202500099153

PATIENT
  Age: 62 Year
  Sex: Female
  Weight: 73.469 kg

DRUGS (2)
  1. TIVDAK [Suspect]
     Active Substance: TISOTUMAB VEDOTIN-TFTV
     Indication: Cervix carcinoma
     Dosage: 80MG INFUSION EVERY 3 WEEKS
     Dates: start: 20250311
  2. TIVDAK [Suspect]
     Active Substance: TISOTUMAB VEDOTIN-TFTV
     Dosage: 80 MG (VIA IV) EVERY 21 DAYS
     Route: 042

REACTIONS (5)
  - Cataract [Unknown]
  - Constipation [Unknown]
  - Nausea [Unknown]
  - Weight decreased [Unknown]
  - Off label use [Unknown]

NARRATIVE: CASE EVENT DATE: 20250101
